FAERS Safety Report 7453030-X (Version None)
Quarter: 2011Q2

REPORT INFORMATION
  Report Type: 
  Country: None (occurrence: None)
  Receive Date: 20110502
  Receipt Date: 20110113
  Transmission Date: 20111010
  Serious: No
  Sender: FDA-Public Use
  Company Number: US-ASTRAZENECA-2010SE60408

PATIENT
  Age: 52 Year
  Sex: Female

DRUGS (3)
  1. PRILOSEC [Suspect]
     Route: 048
  2. DEXILANT [Concomitant]
  3. NEXIUM [Suspect]
     Route: 048

REACTIONS (5)
  - RHEUMATOID ARTHRITIS [None]
  - FIBROMYALGIA [None]
  - DYSPEPSIA [None]
  - EPHELIDES [None]
  - ROAD TRAFFIC ACCIDENT [None]
